FAERS Safety Report 8411517-7 (Version None)
Quarter: 2012Q2

REPORT INFORMATION
  Report Type: 
  Country: None (occurrence: None)
  Receive Date: 20120531
  Receipt Date: 20120531
  Transmission Date: 20120825
  Serious: Yes (Other)
  Sender: FDA-Public Use
  Company Number: None

PATIENT
  Sex: Male
  Weight: 167 kg

DRUGS (2)
  1. NEURONTIN [Suspect]
     Dosage: 300 MG 1 DAY 600 MG 1 DAY
     Dates: start: 20120112
  2. NEURONTIN [Suspect]
     Dosage: 300 MG 1 DAY 600 MG 1 DAY
     Dates: start: 20111220

REACTIONS (3)
  - WEIGHT DECREASED [None]
  - HYPOPHAGIA [None]
  - MUSCULOSKELETAL DISORDER [None]
